FAERS Safety Report 24539884 (Version 2)
Quarter: 2024Q4

REPORT INFORMATION
  Report Type: Spontaneous
  Country: TW (occurrence: TW)
  Receive Date: 20241023
  Receipt Date: 20241106
  Transmission Date: 20250114
  Serious: Yes (Other)
  Sender: PFIZER
  Company Number: TW-PFIZER INC-PV202400136064

PATIENT
  Age: 50 Year
  Sex: Female

DRUGS (2)
  1. TECLISTAMAB [Suspect]
     Active Substance: TECLISTAMAB
  2. TOCILIZUMAB [Concomitant]
     Active Substance: TOCILIZUMAB
     Dosage: ONCE

REACTIONS (9)
  - Cytokine release syndrome [Recovered/Resolved]
  - Urinary retention [Unknown]
  - Myelopathy [Unknown]
  - Myelitis [Unknown]
  - Hypoaesthesia oral [Unknown]
  - Blood lactate dehydrogenase increased [Unknown]
  - Abdominal pain [Unknown]
  - Abdominal distension [Unknown]
  - Muscular weakness [Unknown]
